FAERS Safety Report 16724286 (Version 1)
Quarter: 2019Q3

REPORT INFORMATION
  Report Type: Spontaneous
  Country: US (occurrence: US)
  Receive Date: 20190703
  Receipt Date: 20190703
  Transmission Date: 20191005
  Serious: No
  Sender: FDA-Public Use
  Company Number: None

PATIENT
  Age: 68 Year
  Sex: Female

DRUGS (13)
  1. BUPROPION. [Concomitant]
     Active Substance: BUPROPION
  2. EZETIMIBE. [Concomitant]
     Active Substance: EZETIMIBE
  3. GLIPIZIDE. [Concomitant]
     Active Substance: GLIPIZIDE
  4. TOUJEO [Concomitant]
     Active Substance: INSULIN GLARGINE
  5. ASPIRIN. [Concomitant]
     Active Substance: ASPIRIN
  6. PANTOPRAZOLE [Concomitant]
     Active Substance: PANTOPRAZOLE
  7. LEVOTHYROXINE. [Concomitant]
     Active Substance: LEVOTHYROXINE
  8. URSODIOL. [Concomitant]
     Active Substance: URSODIOL
  9. METFORMIN [Concomitant]
     Active Substance: METFORMIN HYDROCHLORIDE
  10. NOVOLOG [Concomitant]
     Active Substance: INSULIN ASPART
  11. OCALIVA [Suspect]
     Active Substance: OBETICHOLIC ACID
     Indication: PRIMARY BILIARY CHOLANGITIS
     Route: 048
     Dates: start: 20170331
  12. GABAPENTIN. [Concomitant]
     Active Substance: GABAPENTIN
  13. SPIRONOLACT [Concomitant]
     Active Substance: SPIRONOLACTONE

REACTIONS (1)
  - Pruritus [None]

NARRATIVE: CASE EVENT DATE: 201906
